FAERS Safety Report 7647723-9 (Version None)
Quarter: 2011Q3

REPORT INFORMATION
  Report Type: 
  Country: None (occurrence: None)
  Receive Date: 20110801
  Receipt Date: 20110801
  Transmission Date: 20111222
  Serious: Yes (Hospitalization)
  Sender: FDA-Public Use
  Company Number: None

PATIENT
  Age: 82 Year
  Sex: Female

DRUGS (15)
  1. LOPRESSOR [Concomitant]
     Route: 048
  2. IRON SULFATETHIAMIN COMPOUND TAB [Concomitant]
     Route: 048
  3. GLARDINE [Concomitant]
  4. LEVELTIRACETAM [Concomitant]
     Route: 048
  5. OXCARBAZEPINE [Concomitant]
     Route: 048
  6. CARBIDOPA + LEVODOPA [Concomitant]
     Route: 048
  7. VANCOMYCIN [Suspect]
     Indication: URINARY TRACT INFECTION
     Dosage: 1 G
     Route: 042
     Dates: start: 20110107, end: 20110117
  8. VANCOMYCIN [Suspect]
     Indication: WOUND INFECTION
     Dosage: 1 G
     Route: 042
     Dates: start: 20110107, end: 20110117
  9. ASPIRIN [Concomitant]
     Route: 048
  10. AMLODIPINE [Concomitant]
     Route: 048
  11. WARFARIN [Concomitant]
     Route: 048
  12. HEPARIN [Concomitant]
     Route: 058
  13. ENALAPRIL MALEATE [Concomitant]
     Route: 048
  14. FAMOTIDINE [Concomitant]
     Route: 048
  15. ACETAMINOPHEN AND CODEINE PHOSPHATE #3 [Concomitant]
     Route: 048

REACTIONS (2)
  - NEPHROPATHY TOXIC [None]
  - RENAL FAILURE ACUTE [None]
